FAERS Safety Report 9316799 (Version 1)
Quarter: 2013Q2

REPORT INFORMATION
  Report Type: Spontaneous
  Country: US (occurrence: US)
  Receive Date: 20130530
  Receipt Date: 20130530
  Transmission Date: 20140414
  Serious: Yes (Other)
  Sender: FDA-Public Use
  Company Number: US-BAYER-2013-064219

PATIENT
  Age: 30 Year
  Sex: Female

DRUGS (1)
  1. MIRENA [Suspect]
     Indication: CONTRACEPTION
     Dosage: 20 MCG/24HR, CONT
     Dates: start: 20110524, end: 20130521

REACTIONS (4)
  - Genital haemorrhage [Recovered/Resolved]
  - Discomfort [None]
  - Abdominal pain lower [None]
  - Device dislocation [None]
